FAERS Safety Report 16369679 (Version 2)
Quarter: 2019Q2

REPORT INFORMATION
  Report Type: Report from Study
  Country: SE (occurrence: SE)
  Receive Date: 20190530
  Receipt Date: 20190610
  Transmission Date: 20190711
  Serious: Yes (Other)
  Sender: FDA-Public Use
  Company Number: SE-UCBSA-2019022225

PATIENT
  Age: 57 Year
  Sex: Male

DRUGS (1)
  1. CERTOLIZUMAB PEGOL [Suspect]
     Active Substance: CERTOLIZUMAB PEGOL
     Indication: RHEUMATOID ARTHRITIS
     Dosage: 200 MILLIGRAM
     Dates: start: 20120403, end: 20161221

REACTIONS (1)
  - Tonsil cancer [Recovering/Resolving]

NARRATIVE: CASE EVENT DATE: 20161221
